FAERS Safety Report 5547353-9 (Version None)
Quarter: 2007Q4

REPORT INFORMATION
  Report Type: 
  Country: None (occurrence: None)
  Receive Date: 20071128
  Receipt Date: 20061127
  Transmission Date: 20080405
  Serious: Yes (Other)
  Sender: FDA-Public Use
  Company Number: 2006147490

PATIENT
  Age: 75 Year
  Sex: Male
  Weight: 89.3586 kg

DRUGS (7)
  1. LIPITOR [Suspect]
     Indication: BLOOD CHOLESTEROL INCREASED
     Dosage: 10 MG (10 MG, 1 IN 1 D), ORAL
     Route: 048
     Dates: start: 20030101
  2. ACCUPRIL [Concomitant]
  3. HYDROCHLOROTHIAZIDE [Concomitant]
  4. ZOLOFT [Concomitant]
  5. ANTIOXIDANTS (ANTIOXIDANTS) [Concomitant]
  6. MULTI-VITAMINS [Concomitant]
  7. BENAZEPRIL HYDROCHLORIDE (BENAZEPRIL HYDROCHLORIDE) [Concomitant]

REACTIONS (3)
  - AMNESIA [None]
  - MUSCLE SPASMS [None]
  - MYALGIA [None]
